FAERS Safety Report 4690440-8 (Version None)
Quarter: 2005Q2

REPORT INFORMATION
  Report Type: 
  Country: None (occurrence: None)
  Receive Date: 20050615
  Receipt Date: 20050509
  Transmission Date: 20051028
  Serious: Yes (Death, Hospitalization)
  Sender: FDA-Public Use
  Company Number: 2005UW07169

PATIENT
  Age: 82 Year
  Sex: Male

DRUGS (2)
  1. SEROQUEL [Suspect]
     Indication: AGITATION
     Dosage: 25 MG QAM, 25 MG NOON, 50 MG HS
     Dates: start: 20020501, end: 20050428
  2. SEROQUEL [Suspect]
     Indication: ABNORMAL BEHAVIOUR
     Dosage: 25 MG QAM, 25 MG NOON, 50 MG HS
     Dates: start: 20020501, end: 20050428

REACTIONS (2)
  - PNEUMONIA [None]
  - SOMNOLENCE [None]
